FAERS Safety Report 24813306 (Version 3)
Quarter: 2025Q1

REPORT INFORMATION
  Report Type: Report from Study
  Country: US (occurrence: US)
  Receive Date: 20250107
  Receipt Date: 20250213
  Transmission Date: 20250409
  Serious: Yes (Hospitalization, Other)
  Sender: ABBVIE
  Company Number: US-ABBVIE-6071525

PATIENT
  Age: 72 Year
  Sex: Female
  Weight: 76.203 kg

DRUGS (19)
  1. HUMIRA [Suspect]
     Active Substance: ADALIMUMAB
     Indication: Rheumatoid arthritis
     Dosage: CITRATE FREE ; STRENGTH: 40MG
     Route: 058
     Dates: start: 20230725
  2. IMODIUM [Concomitant]
     Active Substance: LOPERAMIDE HYDROCHLORIDE
     Indication: Diarrhoea
  3. CITRUCEL [Concomitant]
     Active Substance: METHYLCELLULOSE (4000 CPS)
     Indication: Supplementation therapy
  4. LORAZEPAM [Concomitant]
     Active Substance: LORAZEPAM
     Indication: Anxiety
  5. ALEVE [Concomitant]
     Active Substance: NAPROXEN SODIUM
     Indication: Arthritis
  6. LACTASE [Concomitant]
     Active Substance: LACTASE
     Indication: Gastrointestinal disorder
  7. UNISOM SLEEPTABS [Concomitant]
     Active Substance: DOXYLAMINE SUCCINATE
     Indication: Sleep disorder
  8. LIDOCAINE [Concomitant]
     Active Substance: LIDOCAINE
     Indication: Pain
  9. PEPTO-BISMOL [Concomitant]
     Active Substance: BISMUTH SUBSALICYLATE
     Indication: Gastrointestinal disorder
  10. ASPIRIN [Concomitant]
     Active Substance: ASPIRIN
     Indication: Blood pressure measurement
  11. ASPIRIN [Concomitant]
     Active Substance: ASPIRIN
     Indication: Blood pressure measurement
  12. FOLIC ACID [Concomitant]
     Active Substance: FOLIC ACID
     Indication: Mineral supplementation
  13. VITAMIN C [Concomitant]
     Active Substance: ASCORBIC ACID
     Indication: Vitamin supplementation
  14. COLESTIPOL [Concomitant]
     Active Substance: COLESTIPOL
     Indication: Diarrhoea
  15. RESTASIS [Concomitant]
     Active Substance: CYCLOSPORINE
     Indication: Eye disorder
  16. ESCITALOPRAM [Concomitant]
     Active Substance: ESCITALOPRAM OXALATE
     Indication: Anxiety
  17. LEVOTHYROXINE [Concomitant]
     Active Substance: LEVOTHYROXINE
     Indication: Thyroid disorder
  18. ESTRADIOL [Concomitant]
     Active Substance: ESTRADIOL
     Indication: Pain
  19. TYLENOL [Concomitant]
     Active Substance: ACETAMINOPHEN
     Indication: Pain

REACTIONS (4)
  - Dementia [Not Recovered/Not Resolved]
  - Diarrhoea [Recovered/Resolved]
  - Knee arthroplasty [Unknown]
  - Influenza [Recovered/Resolved]

NARRATIVE: CASE EVENT DATE: 20240101
